FAERS Safety Report 15239733 (Version 1)
Quarter: 2018Q3

REPORT INFORMATION
  Report Type: Spontaneous
  Country: US (occurrence: US)
  Receive Date: 20180803
  Receipt Date: 20180803
  Transmission Date: 20181010
  Serious: Yes (Hospitalization, Other)
  Sender: FDA-Public Use
  Company Number: US-SA-2018SA198143

PATIENT
  Age: 39 Year
  Sex: Male
  Weight: 80.1 kg

DRUGS (16)
  1. ATIVAN [Concomitant]
     Active Substance: LORAZEPAM
     Route: 065
  2. K?DUR [Concomitant]
     Active Substance: POTASSIUM CHLORIDE
     Route: 065
  3. TAXOTERE [Suspect]
     Active Substance: DOCETAXEL
     Indication: SOFT TISSUE SARCOMA
     Dosage: 45 MG/M2
     Route: 042
     Dates: start: 20171101, end: 20180613
  4. ROBITUSSIN EX [Concomitant]
     Route: 065
  5. COZAAR [Concomitant]
     Active Substance: LOSARTAN POTASSIUM
     Route: 065
  6. ZOFRAN [ONDANSETRON HYDROCHLORIDE] [Concomitant]
     Route: 065
  7. COMPAZINE [Concomitant]
     Active Substance: PROCHLORPERAZINE MALEATE
     Route: 065
  8. TENORMIN [Concomitant]
     Active Substance: ATENOLOL
     Route: 065
  9. DECADRON [DEXAMETHASONE ACETATE] [Concomitant]
     Route: 065
  10. FLONASE SENSIMIST ALLERGY RELIEF [Concomitant]
     Active Substance: FLUTICASONE FUROATE
     Route: 065
  11. EMLA [LIDOCAINE HYDROCHLORIDE;PRILOCAINE HYDROCHLORIDE] [Concomitant]
     Route: 065
  12. ROXICODONE [Concomitant]
     Active Substance: OXYCODONE HYDROCHLORIDE
     Route: 065
  13. LASIX HIGH DOSE [Concomitant]
     Route: 065
  14. CLARITIN HIVES RELIEF [Concomitant]
     Route: 065
  15. MS CONTIN [Concomitant]
     Active Substance: MORPHINE SULFATE
     Route: 065
  16. ZYLOPRIM [Concomitant]
     Active Substance: ALLOPURINOL
     Route: 065

REACTIONS (4)
  - Anaemia [Unknown]
  - Epistaxis [Unknown]
  - Thrombocytopenia [Unknown]
  - Haematemesis [Unknown]
